FAERS Safety Report 9797850 (Version 1)
Quarter: 2014Q1

REPORT INFORMATION
  Report Type: Spontaneous
  Country: GB (occurrence: GB)
  Receive Date: 20140106
  Receipt Date: 20140106
  Transmission Date: 20141002
  Serious: Yes (Other)
  Sender: FDA-Public Use
  Company Number: GB-ASTRAZENECA-2014SE00021

PATIENT
  Age: 41 Year
  Sex: Female

DRUGS (3)
  1. OMEPRAZOLE [Suspect]
     Indication: GASTROOESOPHAGEAL REFLUX DISEASE
     Route: 048
     Dates: start: 20131217, end: 20131217
  2. SALBUTAMOL [Concomitant]
  3. PIRITEZE [Concomitant]

REACTIONS (2)
  - Asthma [Recovered/Resolved]
  - Rash [Recovering/Resolving]
